FAERS Safety Report 16783368 (Version 1)
Quarter: 2019Q3

REPORT INFORMATION
  Report Type: Spontaneous
  Country: US (occurrence: US)
  Receive Date: 20190907
  Receipt Date: 20190907
  Transmission Date: 20191005
  Serious: No
  Sender: FDA-Public Use
  Company Number: US-DRREDDYS-USA/USA/19/0113998

PATIENT

DRUGS (2)
  1. AZACITIDINE. [Suspect]
     Active Substance: AZACITIDINE
     Indication: PRODUCT USED FOR UNKNOWN INDICATION
     Route: 058
  2. AZACITIDINE. [Suspect]
     Active Substance: AZACITIDINE
     Route: 058

REACTIONS (2)
  - Incorrect dose administered [Unknown]
  - Product quality issue [Unknown]
